FAERS Safety Report 4362726-8 (Version None)
Quarter: 2004Q2

REPORT INFORMATION
  Report Type: 
  Country: None (occurrence: None)
  Receive Date: 20040517
  Receipt Date: 20040406
  Transmission Date: 20050107
  Serious: No
  Sender: FDA-Public Use
  Company Number: S04-USA-02030-01

PATIENT
  Age: 83 Year
  Sex: Male

DRUGS (11)
  1. NAMENDA [Suspect]
     Indication: DEMENTIA ALZHEIMER'S TYPE
     Dosage: 10 MG QAM PO
     Route: 048
     Dates: start: 20040404
  2. NAMENDA [Suspect]
     Indication: DEMENTIA ALZHEIMER'S TYPE
     Dosage: 5 MG QHS PO
     Route: 048
     Dates: start: 20040404
  3. NAMENDA [Suspect]
     Indication: DEMENTIA ALZHEIMER'S TYPE
     Dosage: 5 MG QD PO
     Route: 048
     Dates: start: 20040321, end: 20040327
  4. NAMENDA [Suspect]
     Indication: DEMENTIA ALZHEIMER'S TYPE
     Dosage: 5 MG BID PO
     Route: 048
     Dates: start: 20040328, end: 20040403
  5. ARICEPT [Concomitant]
  6. CARBIDOPA AND LEVODOPA [Concomitant]
  7. SEROQUEL [Concomitant]
  8. NAPROXEN [Concomitant]
  9. DIGOXIN [Concomitant]
  10. MULTIVITAMIN [Concomitant]
  11. STOOL SOFTENERS [Concomitant]

REACTIONS (1)
  - CONFUSIONAL STATE [None]
